FAERS Safety Report 10995903 (Version 3)
Quarter: 2015Q2

REPORT INFORMATION
  Report Type: Report from Study
  Country: US (occurrence: US)
  Receive Date: 20150407
  Receipt Date: 20150527
  Transmission Date: 20150821
  Serious: Yes (Hospitalization)
  Sender: FDA-Public Use
  Company Number: US-ACTELION-A-US2015-115754

PATIENT
  Age: 81 Year
  Sex: Female

DRUGS (1)
  1. MACITENTAN [Suspect]
     Active Substance: MACITENTAN
     Indication: PULMONARY ARTERIAL HYPERTENSION
     Dosage: 10 MG, QD
     Route: 048
     Dates: start: 201503

REACTIONS (9)
  - Blood sodium decreased [Unknown]
  - Mobility decreased [Unknown]
  - Oedema [Unknown]
  - Renal failure [Unknown]
  - Fluid retention [Unknown]
  - Blood potassium increased [Unknown]
  - Condition aggravated [Unknown]
  - Dyspnoea [Unknown]
  - Oxygen saturation decreased [Unknown]
